FAERS Safety Report 4686583-5 (Version None)
Quarter: 2005Q2

REPORT INFORMATION
  Report Type: 
  Country: None (occurrence: None)
  Receive Date: 20050607
  Receipt Date: 20050523
  Transmission Date: 20051028
  Serious: Yes (Hospitalization)
  Sender: FDA-Public Use
  Company Number: 2005078959

PATIENT
  Age: 53 Year
  Sex: Male
  Weight: 90.7194 kg

DRUGS (7)
  1. CELEBREX [Suspect]
     Indication: RHEUMATOID ARTHRITIS
     Dosage: 400 MG (400 MG, 1 IN 1 D)
  2. INSULIN [Concomitant]
  3. METFORMIN HCL [Concomitant]
  4. ACTOS [Concomitant]
  5. PROPOXYPHENE (DEXTROPROPOXYPHENE) [Concomitant]
  6. INDAPAMIDE [Concomitant]
  7. ALLOPURINOL [Concomitant]

REACTIONS (1)
  - MALIGNANT MELANOMA [None]
